FAERS Safety Report 12154791 (Version 1)
Quarter: 2016Q1

REPORT INFORMATION
  Report Type: Spontaneous
  Country: GB (occurrence: GB)
  Receive Date: 20160307
  Receipt Date: 20160307
  Transmission Date: 20160526
  Serious: Yes (Life-Threatening, Hospitalization, Other)
  Sender: FDA-Public Use
  Company Number: GB-WATSON-2016-04532

PATIENT
  Age: 15 Year
  Sex: Male

DRUGS (2)
  1. ARIPIPRAZOLE (UNKNOWN) [Suspect]
     Active Substance: ARIPIPRAZOLE
     Indication: PSYCHOTIC DISORDER
     Dosage: 2.5 MG, UNKNOWN
     Route: 048
     Dates: start: 20160205, end: 20160209
  2. RISPERIDONE (UNKNOWN) [Suspect]
     Active Substance: RISPERIDONE
     Indication: PSYCHOTIC DISORDER
     Dosage: UNK (0.25MG IN THE MORNING + 1MG AT NIGHT)
     Route: 048
     Dates: start: 20160119, end: 20160209

REACTIONS (3)
  - Neuroleptic malignant syndrome [Recovered/Resolved]
  - Myalgia [Unknown]
  - Tremor [Unknown]

NARRATIVE: CASE EVENT DATE: 20160210
